FAERS Safety Report 4540531-7 (Version None)
Quarter: 2004Q4

REPORT INFORMATION
  Report Type: 
  Country: None (occurrence: None)
  Receive Date: 20041228
  Receipt Date: 20041228
  Transmission Date: 20050328
  Serious: Yes (Disabling)
  Sender: FDA-Public Use
  Company Number: None

PATIENT
  Age: 60 Year
  Sex: Male
  Weight: 90.7194 kg

DRUGS (1)
  1. GENTAMICIN [Suspect]
     Indication: ENDOCARDITIS
     Dosage: DAILY  INTRAVENOUS
     Route: 042
     Dates: start: 20021026, end: 20041125

REACTIONS (2)
  - BALANCE DISORDER [None]
  - TINNITUS [None]
